FAERS Safety Report 4861461-7 (Version None)
Quarter: 2005Q4

REPORT INFORMATION
  Report Type: 
  Country: None (occurrence: None)
  Receive Date: 20051220
  Receipt Date: 20051214
  Transmission Date: 20060501
  Serious: Yes (Death, Hospitalization)
  Sender: FDA-Public Use
  Company Number: JP-JNJFOC-20051202963

PATIENT
  Age: 75 Year
  Sex: Female

DRUGS (4)
  1. CRAVIT [Suspect]
     Route: 048
  2. CRAVIT [Suspect]
     Indication: TUBERCULOSIS
     Route: 048
  3. ISCOTIN [Concomitant]
  4. RIFADIN [Concomitant]
     Route: 048

REACTIONS (4)
  - CLOSTRIDIUM COLITIS [None]
  - DEATH [None]
  - HYPOGLYCAEMIA [None]
  - MELAENA [None]
